FAERS Safety Report 11593538 (Version 1)
Quarter: 2015Q4

REPORT INFORMATION
  Report Type: Spontaneous
  Country: US (occurrence: US)
  Receive Date: 20151005
  Receipt Date: 20151005
  Transmission Date: 20160304
  Serious: No
  Sender: FDA-Public Use
  Company Number: US-UCBSA-119149

PATIENT
  Age: 61 Year
  Sex: Female
  Weight: 74.84 kg

DRUGS (8)
  1. NITROGLYCERIN TRANSDERMAL DELIVERY SYSTEM [Suspect]
     Active Substance: NITROGLYCERIN
     Indication: HYPERTENSION
     Dosage: 0.2 MG, ONCE DAILY (QD) , 12 HRS ON AND 12 HRS OFF
     Dates: start: 201312
  2. MS IR [Concomitant]
     Active Substance: MORPHINE SULFATE
     Indication: NITRATE COMPOUND THERAPY
  3. NITROGLYCERIN SL [Concomitant]
  4. SYNTHROID [Concomitant]
     Active Substance: LEVOTHYROXINE SODIUM
     Indication: HYPOTHYROIDISM
     Dosage: DAILY FOR 35 YEARS
  5. AMLODIPINE BESYLATE. [Concomitant]
     Active Substance: AMLODIPINE BESYLATE
     Indication: CARDIAC DISORDER
     Dosage: 5 MG, ONCE DAILY (QD)
  6. SOMA [Concomitant]
     Active Substance: CARISOPRODOL
     Indication: BACK PAIN
     Dosage: NIGHTLY
  7. NITROGLYCERIN TRANSDERMAL DELIVERY SYSTEM [Suspect]
     Active Substance: NITROGLYCERIN
     Indication: ANGINA PECTORIS
  8. MS IR [Concomitant]
     Active Substance: MORPHINE SULFATE
     Indication: PAIN
     Dosage: 15 MG, 2X/DAY (BID)

REACTIONS (6)
  - Pain in extremity [Recovered/Resolved]
  - Weight decreased [Unknown]
  - Malaise [Unknown]
  - Product quality issue [Not Recovered/Not Resolved]
  - Abdominal discomfort [Not Recovered/Not Resolved]
  - Application site reaction [Not Recovered/Not Resolved]

NARRATIVE: CASE EVENT DATE: 2014
